FAERS Safety Report 11739697 (Version 2)
Quarter: 2017Q3

REPORT INFORMATION
  Report Type: Spontaneous
  Country: US (occurrence: US)
  Receive Date: 20151113
  Receipt Date: 20170911
  Transmission Date: 20171127
  Serious: Yes (Hospitalization)
  Sender: FDA-Public Use
  Company Number: US-ASTRAZENECA-2015SF10213

PATIENT
  Age: 70 Year
  Sex: Female

DRUGS (28)
  1. LIDOCAINE. [Suspect]
     Active Substance: LIDOCAINE
     Route: 062
  2. OMEPRAZOLE. [Suspect]
     Active Substance: OMEPRAZOLE
     Route: 048
  3. POLYETHYLENE GLYCOL 3350. [Suspect]
     Active Substance: POLYETHYLENE GLYCOL 3350
     Indication: PRODUCT USED FOR UNKNOWN INDICATION
     Route: 048
  4. HEPARIN SODIUM. [Suspect]
     Active Substance: HEPARIN SODIUM
     Route: 065
  5. DEXAMETHASONE. [Suspect]
     Active Substance: DEXAMETHASONE
     Route: 065
  6. AMIODARONE HYDROCHLORIDE. [Suspect]
     Active Substance: AMIODARONE HYDROCHLORIDE
     Route: 065
  7. CASPOFUNGIN ACETATE. [Suspect]
     Active Substance: CASPOFUNGIN ACETATE
     Route: 065
  8. NALOXONE HYDROCHLORIDE. [Suspect]
     Active Substance: NALOXONE HYDROCHLORIDE
     Route: 065
  9. DIPHENHYDRAMINE. [Suspect]
     Active Substance: DIPHENHYDRAMINE
     Route: 065
  10. VANCOMYCIN HYDROCHLORIDE. [Suspect]
     Active Substance: VANCOMYCIN HYDROCHLORIDE
     Route: 042
  11. ACETAMINOPHEN. [Suspect]
     Active Substance: ACETAMINOPHEN
     Route: 065
  12. ALPRAZOLAM. [Suspect]
     Active Substance: ALPRAZOLAM
     Route: 065
  13. MORPHINE SULFATE. [Suspect]
     Active Substance: MORPHINE SULFATE
     Route: 065
  14. PROMETHAZINE [Suspect]
     Active Substance: PROMETHAZINE\PROMETHAZINE HYDROCHLORIDE
     Route: 065
  15. THALIDOMIDE [Suspect]
     Active Substance: THALIDOMIDE
     Route: 065
  16. TESTOSTERONE ENANTHATE. [Suspect]
     Active Substance: TESTOSTERONE ENANTHATE
     Route: 065
  17. DAPTOMYCIN. [Suspect]
     Active Substance: DAPTOMYCIN
     Route: 042
  18. ZOLPIDEM TARTRATE. [Suspect]
     Active Substance: ZOLPIDEM TARTRATE
     Route: 048
  19. MELOXICAM. [Suspect]
     Active Substance: MELOXICAM
     Route: 065
  20. RANITIDINE HYDROCHLORIDE. [Suspect]
     Active Substance: RANITIDINE HYDROCHLORIDE
     Route: 065
  21. TOBRAMYCIN. [Suspect]
     Active Substance: TOBRAMYCIN
     Route: 065
  22. MEROPENEM. [Suspect]
     Active Substance: MEROPENEM
     Route: 042
  23. HYDROCODONE [Suspect]
     Active Substance: HYDROCODONE
     Route: 065
  24. CEFEPIME [Suspect]
     Active Substance: CEFEPIME HYDROCHLORIDE
     Route: 042
  25. NEUPOGEN [Suspect]
     Active Substance: FILGRASTIM
     Route: 065
  26. PAMIDRONATE DISODIUM. [Suspect]
     Active Substance: PAMIDRONATE DISODIUM
     Route: 042
  27. FLUCONAZOLE. [Suspect]
     Active Substance: FLUCONAZOLE
     Route: 048
  28. PANTOPRAZOLE SODIUM. [Suspect]
     Active Substance: PANTOPRAZOLE SODIUM
     Route: 065

REACTIONS (10)
  - Atrial fibrillation [Unknown]
  - Haemoglobin decreased [Unknown]
  - Febrile neutropenia [Unknown]
  - Pseudomonas infection [Unknown]
  - Unresponsive to stimuli [Unknown]
  - Blood culture positive [Unknown]
  - Haematocrit decreased [Unknown]
  - Streptococcal infection [Unknown]
  - Acute generalised exanthematous pustulosis [Unknown]
  - Oral candidiasis [Unknown]
